FAERS Safety Report 18356456 (Version 2)
Quarter: 2020Q4

REPORT INFORMATION
  Report Type: Spontaneous
  Country: US (occurrence: US)
  Receive Date: 20201007
  Receipt Date: 20201123
  Transmission Date: 20210114
  Serious: No
  Sender: FDA-Public Use
  Company Number: US-JNJFOC-20200950538

PATIENT
  Age: 79 Year
  Sex: Male

DRUGS (1)
  1. TYLENOL 8HR [Suspect]
     Active Substance: ACETAMINOPHEN
     Indication: ARTHRALGIA
     Dosage: START DATE - ABOUT A MONTH PRIOR TO REPORT, DID NOT STOP TAKING THE PRODUCT
     Route: 048
     Dates: start: 2020, end: 202010

REACTIONS (6)
  - Erythema [Recovering/Resolving]
  - Inappropriate schedule of product administration [Unknown]
  - Burning sensation [Recovering/Resolving]
  - Peripheral swelling [Recovering/Resolving]
  - Blister [Recovering/Resolving]
  - Pruritus [Recovering/Resolving]

NARRATIVE: CASE EVENT DATE: 202009
